FAERS Safety Report 8885681 (Version 1)
Quarter: 2012Q4

REPORT INFORMATION
  Report Type: 
  Country: US (occurrence: US)
  Receive Date: 20121102
  Receipt Date: 20121102
  Transmission Date: 20130627
  Serious: Yes (Hospitalization, Other)
  Sender: FDA-Public Use
  Company Number: US-PAR PHARMACEUTICAL, INC-2012SCPR004684

PATIENT

DRUGS (1)
  1. CABERGOLINE [Suspect]
     Indication: PROLACTINOMA
     Dosage: 0.5 mg, twice weekly
     Route: 065

REACTIONS (2)
  - Pneumocephalus [Recovered/Resolved]
  - Cerebrospinal fluid leakage [Recovered/Resolved]
